FAERS Safety Report 20995559 (Version 2)
Quarter: 2022Q3

REPORT INFORMATION
  Report Type: Report from Study
  Country: US (occurrence: US)
  Receive Date: 20220623
  Receipt Date: 20220921
  Transmission Date: 20221027
  Serious: Yes (Hospitalization, Other)
  Sender: FDA-Public Use
  Company Number: US-BRISTOL-MYERS SQUIBB COMPANY-2022-054331

PATIENT
  Age: 79 Year
  Sex: Male
  Weight: 97.52 kg

DRUGS (14)
  1. POMALYST [Suspect]
     Active Substance: POMALIDOMIDE
     Indication: Plasma cell myeloma
     Dosage: FREQUENCY: DAY 1-21, 28 DAY CYCLE.
     Route: 048
     Dates: start: 20220601
  2. POMALYST [Suspect]
     Active Substance: POMALIDOMIDE
     Dosage: DOSE REDUCED AND DISCONTINUED ON AN UNKNOWN DATE
     Route: 048
     Dates: start: 202206
  3. ACYCLOVIR [Concomitant]
     Active Substance: ACYCLOVIR
     Indication: Product used for unknown indication
     Route: 065
  4. DAILY-VITE [Concomitant]
     Indication: Product used for unknown indication
     Route: 065
  5. DARZALEX [Concomitant]
     Active Substance: DARATUMUMAB
     Indication: Product used for unknown indication
     Route: 065
  6. DEXAMETHASONE [Concomitant]
     Active Substance: DEXAMETHASONE
     Indication: Product used for unknown indication
     Route: 065
  7. DILTIAZEM 12HR [Concomitant]
     Indication: Product used for unknown indication
     Route: 065
  8. IRON [Concomitant]
     Active Substance: IRON
     Indication: Product used for unknown indication
     Route: 065
  9. ASPIRIN [Concomitant]
     Active Substance: ASPIRIN
     Indication: Product used for unknown indication
     Route: 065
  10. METOPROLOL TARTRATE [Concomitant]
     Active Substance: METOPROLOL TARTRATE
     Indication: Product used for unknown indication
     Route: 065
  11. COVID-19 VACCINE [Concomitant]
     Indication: Product used for unknown indication
     Route: 065
  12. COBAMAMIDE [Concomitant]
     Active Substance: COBAMAMIDE
     Indication: Product used for unknown indication
     Route: 065
  13. VITAMIN D3 [Concomitant]
     Active Substance: CHOLECALCIFEROL
     Indication: Product used for unknown indication
     Route: 065
  14. LOPERAMIDE HYDROCHLORIDE [Concomitant]
     Active Substance: LOPERAMIDE HYDROCHLORIDE
     Indication: Product used for unknown indication
     Route: 065

REACTIONS (17)
  - Pneumonia [Recovering/Resolving]
  - Pyrexia [Recovered/Resolved]
  - Hyperhidrosis [Unknown]
  - Dyspnoea exertional [Unknown]
  - Urticaria [Unknown]
  - Dizziness [Unknown]
  - Feeling abnormal [Unknown]
  - Fall [Unknown]
  - White blood cell count decreased [Unknown]
  - Asthenia [Unknown]
  - Bone marrow disorder [Unknown]
  - Chills [Unknown]
  - Malaise [Unknown]
  - Infection [Recovering/Resolving]
  - Cough [Recovered/Resolved]
  - Ageusia [Recovered/Resolved]
  - Anosmia [Recovered/Resolved]

NARRATIVE: CASE EVENT DATE: 20220602
